FAERS Safety Report 18672647 (Version 4)
Quarter: 2021Q1

REPORT INFORMATION
  Report Type: Spontaneous
  Country: US (occurrence: US)
  Receive Date: 20201228
  Receipt Date: 20210208
  Transmission Date: 20210419
  Serious: No
  Sender: FDA-Public Use
  Company Number: US-PFIZER INC-2020450739

PATIENT
  Age: 83 Year
  Sex: Female
  Weight: 70.75 kg

DRUGS (2)
  1. XELJANZ XR [Suspect]
     Active Substance: TOFACITINIB CITRATE
     Indication: ARTHRITIS
  2. XELJANZ XR [Suspect]
     Active Substance: TOFACITINIB CITRATE
     Indication: SINUS DISORDER
     Dosage: 20 MG
     Dates: start: 202009

REACTIONS (5)
  - Hypersensitivity [Recovered/Resolved]
  - Diarrhoea [Recovered/Resolved]
  - Wrong technique in product usage process [Recovered/Resolved]
  - Product prescribing error [Unknown]
  - Abnormal faeces [Recovered/Resolved]

NARRATIVE: CASE EVENT DATE: 202009
